FAERS Safety Report 13829801 (Version 5)
Quarter: 2017Q4

REPORT INFORMATION
  Report Type: Spontaneous
  Country: JP (occurrence: JP)
  Receive Date: 20170803
  Receipt Date: 20171115
  Transmission Date: 20180320
  Serious: Yes (Hospitalization)
  Sender: FDA-Public Use
  Company Number: PHHY2017JP112986

PATIENT
  Age: 76 Year
  Sex: Female

DRUGS (4)
  1. RIVASTACH [Suspect]
     Active Substance: RIVASTIGMINE
     Dosage: 4.6 MG, QD PATCH 5 (CM2), 9 MG RIVASTIGMINE
     Route: 062
     Dates: start: 20160523, end: 20160619
  2. RIVASTACH [Suspect]
     Active Substance: RIVASTIGMINE
     Dosage: 6.9 MG, QD PATCH, 13.5 MG RIVASTIGMINE
     Route: 062
     Dates: start: 20160620, end: 20170608
  3. RIVASTACH [Suspect]
     Active Substance: RIVASTIGMINE
     Indication: DEMENTIA ALZHEIMER^S TYPE
     Dosage: 1.9 MG, QD PATCH, 4.5 MG RIVASTIGMINE
     Route: 062
     Dates: start: 20160426, end: 20170522
  4. VESICARE [Concomitant]
     Active Substance: SOLIFENACIN SUCCINATE
     Indication: PRODUCT USED FOR UNKNOWN INDICATION
     Dosage: UNK
     Route: 065
     Dates: end: 20170608

REACTIONS (2)
  - Cerebral infarction [Recovering/Resolving]
  - Bile duct stone [Recovering/Resolving]

NARRATIVE: CASE EVENT DATE: 20170601
